FAERS Safety Report 4697343-3 (Version None)
Quarter: 2005Q2

REPORT INFORMATION
  Report Type: 
  Country: None (occurrence: None)
  Receive Date: 20050620
  Receipt Date: 20050602
  Transmission Date: 20051028
  Serious: Yes (Other)
  Sender: FDA-Public Use
  Company Number: DSA_26565_2005

PATIENT
  Age: 48 Year
  Sex: Female

DRUGS (7)
  1. TEMESTA [Suspect]
     Dosage: DF
     Dates: start: 20040823, end: 20040906
  2. ZELDOX [Suspect]
     Dosage: 160 MG Q DAY PO
     Route: 048
     Dates: start: 20040901, end: 20040910
  3. ZELDOX [Suspect]
     Dosage: 140 MG Q DAY PO
     Route: 048
     Dates: start: 20040831, end: 20040831
  4. ZELDOX [Suspect]
     Dosage: 120 MG Q DAY PO
     Route: 048
     Dates: start: 20040824, end: 20040830
  5. L-THYROXIN [Concomitant]
  6. NEXIUM [Concomitant]
  7. RISPERDAL [Concomitant]

REACTIONS (3)
  - BLOOD PROLACTIN INCREASED [None]
  - PROLACTINOMA [None]
  - TREATMENT NONCOMPLIANCE [None]
